FAERS Safety Report 6898423-4 (Version None)
Quarter: 2010Q3

REPORT INFORMATION
  Report Type: 
  Country: None (occurrence: None)
  Receive Date: 20100802
  Receipt Date: 20071016
  Transmission Date: 20110219
  Serious: No
  Sender: FDA-Public Use
  Company Number: US-PFIZER INC-2007077707

PATIENT
  Sex: Female
  Weight: 106.1 kg

DRUGS (13)
  1. LYRICA [Suspect]
     Indication: NEURALGIA
     Route: 048
  2. LYRICA [Suspect]
     Indication: FIBROMYALGIA
  3. WARFARIN SODIUM [Concomitant]
  4. LASIX [Concomitant]
  5. SEROQUEL [Concomitant]
  6. VALIUM [Concomitant]
  7. OXYCODONE [Concomitant]
  8. HYOSCYAMINE [Concomitant]
  9. FENTANYL [Concomitant]
  10. CYMBALTA [Concomitant]
  11. BACLOFEN [Concomitant]
  12. NEXIUM [Concomitant]
  13. VESICARE [Concomitant]

REACTIONS (1)
  - MUSCLE TWITCHING [None]
